FAERS Safety Report 8776897 (Version 2)
Quarter: 2012Q4

REPORT INFORMATION
  Report Type: 
  Country: JP (occurrence: JP)
  Receive Date: 20120911
  Receipt Date: 20121002
  Transmission Date: 20130627
  Serious: Yes (Other)
  Sender: FDA-Public Use
  Company Number: JP-B.I. PHARMACEUTICALS,INC./RIDGEFIELD-2012-BP-21538NB

PATIENT
  Age: 7 None
  Sex: Male

DRUGS (2)
  1. PRAZAXA [Suspect]
     Indication: ATRIAL FIBRILLATION
     Route: 048
  2. CRESTOR [Suspect]
     Route: 048
     Dates: start: 2010

REACTIONS (1)
  - Rhabdomyolysis [Recovered/Resolved]
